FAERS Safety Report 6998694-X (Version None)
Quarter: 2010Q3

REPORT INFORMATION
  Report Type: 
  Country: None (occurrence: None)
  Receive Date: 20100920
  Receipt Date: 20100512
  Transmission Date: 20110219
  Serious: No
  Sender: FDA-Public Use
  Company Number: US-ASTRAZENECA-2007UW17028

PATIENT
  Age: 192 Month
  Sex: Female
  Weight: 68 kg

DRUGS (9)
  1. SEROQUEL [Suspect]
     Indication: DEPRESSION
     Dosage: 25 MG - 100 MG
     Route: 048
     Dates: start: 20030201, end: 20051001
  2. SEROQUEL [Suspect]
     Indication: POST-TRAUMATIC STRESS DISORDER
     Dosage: 25 MG - 100 MG
     Route: 048
     Dates: start: 20030201, end: 20051001
  3. ZYPREXA [Suspect]
     Indication: DEPRESSION
     Dosage: 2.5 MG -10 MG
     Route: 048
     Dates: start: 20010601, end: 20021101
  4. ZYPREXA [Suspect]
     Indication: POST-TRAUMATIC STRESS DISORDER
     Dosage: 2.5 MG -10 MG
     Route: 048
     Dates: start: 20010601, end: 20021101
  5. RISPERDAL [Suspect]
     Indication: DEPRESSION
     Route: 048
     Dates: start: 20010601
  6. RISPERDAL [Suspect]
     Indication: POST-TRAUMATIC STRESS DISORDER
     Route: 048
     Dates: start: 20010601
  7. ABILIFY [Concomitant]
  8. CLOZARIL [Concomitant]
  9. HALDOL [Concomitant]

REACTIONS (3)
  - ADVERSE DRUG REACTION [None]
  - DIABETES MELLITUS [None]
  - WEIGHT INCREASED [None]
